FAERS Safety Report 17420589 (Version 2)
Quarter: 2020Q1

REPORT INFORMATION
  Report Type: Spontaneous
  Country: SE (occurrence: SE)
  Receive Date: 20200214
  Receipt Date: 20200226
  Transmission Date: 20200409
  Serious: Yes (Hospitalization, Other)
  Sender: FDA-Public Use
  Company Number: SE-ENDO PHARMACEUTICALS INC-2020-001468

PATIENT
  Age: 68 Year
  Sex: Male

DRUGS (3)
  1. AVEED [Suspect]
     Active Substance: TESTOSTERONE UNDECANOATE
     Dosage: 1 DF, EVERY 6 MONTHS
     Route: 065
  2. AVEED [Suspect]
     Active Substance: TESTOSTERONE UNDECANOATE
     Indication: KLINEFELTER^S SYNDROME
     Dosage: 1 DF, EVERY 3 MONTHS
     Route: 065
     Dates: start: 20090801
  3. WARAN [Suspect]
     Active Substance: WARFARIN SODIUM
     Indication: PRODUCT USED FOR UNKNOWN INDICATION
     Dosage: UNK UNKNOWN, UNKNOWN
     Route: 065
     Dates: end: 201402

REACTIONS (14)
  - Subdural haematoma [Recovered/Resolved with Sequelae]
  - Blood pressure decreased [Unknown]
  - Tremor [Recovering/Resolving]
  - Musculoskeletal stiffness [Not Recovered/Not Resolved]
  - Fall [Unknown]
  - Labelled drug-drug interaction medication error [Unknown]
  - Pulmonary embolism [Recovering/Resolving]
  - Bradyphrenia [Not Recovered/Not Resolved]
  - Prostatomegaly [Not Recovered/Not Resolved]
  - Pollakiuria [Unknown]
  - Polymyalgia rheumatica [Unknown]
  - Traumatic intracranial haemorrhage [Recovered/Resolved with Sequelae]
  - Joint stiffness [Not Recovered/Not Resolved]
  - Hypertension [Unknown]

NARRATIVE: CASE EVENT DATE: 201402
